FAERS Safety Report 5151429-8 (Version None)
Quarter: 2006Q4

REPORT INFORMATION
  Report Type: 
  Country: None (occurrence: None)
  Receive Date: 20061115
  Receipt Date: 20061109
  Transmission Date: 20070319
  Serious: Yes (Hospitalization, Other)
  Sender: FDA-Public Use
  Company Number: AU-BRISTOL-MYERS SQUIBB COMPANY-13572250

PATIENT
  Sex: Male

DRUGS (2)
  1. EFAVIRENZ [Suspect]
     Route: 048
  2. REYATAZ [Suspect]
     Route: 048

REACTIONS (3)
  - HYPERBILIRUBINAEMIA [None]
  - PROTEINURIA [None]
  - RENAL IMPAIRMENT [None]
